FAERS Safety Report 5578006-9 (Version None)
Quarter: 2007Q4

REPORT INFORMATION
  Report Type: 
  Country: None (occurrence: None)
  Receive Date: 20071231
  Receipt Date: 20071217
  Transmission Date: 20080405
  Serious: Yes (Hospitalization)
  Sender: FDA-Public Use
  Company Number: DE-GENENTECH-252924

PATIENT
  Sex: Female
  Weight: 92 kg

DRUGS (8)
  1. XOLAIR [Suspect]
     Indication: ASTHMA
     Dosage: 300 MG, Q2W
     Route: 058
     Dates: start: 20060126
  2. XOLAIR [Suspect]
     Dosage: 150 MG, Q2W
     Route: 058
     Dates: start: 20060126
  3. ANTICOAGULANTS [Concomitant]
     Indication: DRUG USE FOR UNKNOWN INDICATION
  4. SYMBICORT [Concomitant]
     Indication: DRUG USE FOR UNKNOWN INDICATION
  5. DECORTIN H [Concomitant]
     Indication: DRUG USE FOR UNKNOWN INDICATION
  6. BRONCHORETARD [Concomitant]
     Indication: DRUG USE FOR UNKNOWN INDICATION
  7. SINGULAIR [Concomitant]
     Indication: DRUG USE FOR UNKNOWN INDICATION
  8. BERODUAL [Concomitant]
     Dosage: UNK, UNK

REACTIONS (2)
  - ASTHMA [None]
  - PULMONARY EMBOLISM [None]
